FAERS Safety Report 9942133 (Version 1)
Quarter: 2014Q1

REPORT INFORMATION
  Report Type: Report from Study
  Country: US (occurrence: US)
  Receive Date: 20140303
  Receipt Date: 20140303
  Transmission Date: 20141002
  Serious: No
  Sender: FDA-Public Use
  Company Number: US-ABBVIE-13P-163-1041777-00

PATIENT
  Age: 56 Year
  Sex: Female
  Weight: 54.48 kg

DRUGS (6)
  1. HUMIRA [Suspect]
     Indication: ANKYLOSING SPONDYLITIS
     Route: 058
     Dates: start: 201203, end: 201209
  2. HUMIRA [Suspect]
     Route: 058
     Dates: start: 201212
  3. MULTIVITAMIN [Concomitant]
     Indication: PRODUCT USED FOR UNKNOWN INDICATION
  4. CALCIUM [Concomitant]
     Indication: OSTEOPOROSIS
  5. FISH OIL [Concomitant]
     Indication: PRODUCT USED FOR UNKNOWN INDICATION
  6. IBUPROFEN [Concomitant]
     Indication: ANKYLOSING SPONDYLITIS

REACTIONS (5)
  - Rectal haemorrhage [Recovered/Resolved]
  - Full blood count decreased [Recovering/Resolving]
  - Feeling abnormal [Not Recovered/Not Resolved]
  - Anaemia [Not Recovered/Not Resolved]
  - Ankylosing spondylitis [Recovered/Resolved]
